FAERS Safety Report 7133813-6 (Version None)
Quarter: 2010Q4

REPORT INFORMATION
  Report Type: 
  Country: None (occurrence: None)
  Receive Date: 20101203
  Receipt Date: 20101123
  Transmission Date: 20110411
  Serious: No
  Sender: FDA-Public Use
  Company Number: US-BIOGENIDEC-2010BI041739

PATIENT
  Age: 29 Year
  Sex: Female

DRUGS (2)
  1. TYSABRI [Suspect]
     Indication: MULTIPLE SCLEROSIS
     Route: 042
     Dates: start: 20101027
  2. TYSABRI [Suspect]
     Route: 042
     Dates: start: 20080201, end: 20091218

REACTIONS (4)
  - ANAEMIA [None]
  - CHRONIC SINUSITIS [None]
  - MULTIPLE ALLERGIES [None]
  - VITAMIN D DEFICIENCY [None]
